FAERS Safety Report 9631337 (Version 2)
Quarter: 2013Q4

REPORT INFORMATION
  Report Type: Spontaneous
  Country: US (occurrence: US)
  Receive Date: 20131018
  Receipt Date: 20131018
  Transmission Date: 20140711
  Serious: Yes (Hospitalization)
  Sender: FDA-Public Use
  Company Number: US-UCBSA-093591

PATIENT
  Age: 47 Year
  Sex: Male
  Weight: 93 kg

DRUGS (5)
  1. KEPPRA XR [Suspect]
     Indication: CONVULSION
     Dosage: STRENGTH: 500 MG; 4 TABLETS PER NIGHT
     Dates: start: 2011, end: 2013
  2. KEPPRA XR [Suspect]
     Indication: CONVULSION
     Dosage: STRENGTH: 500 MG; 2 TABLETS PER NIGHT
     Dates: start: 2013
  3. CIALIS [Concomitant]
     Indication: DYSURIA
     Dosage: PRESCRIBED DAILY BUT THE CONSUMER TAKES IT WEEKLY
  4. LAMICTAL [Concomitant]
     Indication: CONVULSION
     Dosage: ONCE NIGHTLY
  5. LAMICTAL [Concomitant]
     Indication: DEPRESSION
     Dosage: ONCE NIGHTLY

REACTIONS (9)
  - Accident [Unknown]
  - Foot fracture [Recovered/Resolved with Sequelae]
  - Laceration [Recovered/Resolved with Sequelae]
  - Convulsion [Recovered/Resolved]
  - Stress [Not Recovered/Not Resolved]
  - Labyrinthitis [Not Recovered/Not Resolved]
  - Fatigue [Not Recovered/Not Resolved]
  - Intentional drug misuse [Unknown]
  - Drug dose omission [Unknown]
